FAERS Safety Report 21237185 (Version 2)
Quarter: 2022Q3

REPORT INFORMATION
  Report Type: Report from Study
  Country: GB (occurrence: GB)
  Receive Date: 20220822
  Receipt Date: 20220824
  Transmission Date: 20221027
  Serious: Yes (Hospitalization)
  Sender: FDA-Public Use
  Company Number: GB-KOREA IPSEN Pharma-2022-23866

PATIENT
  Age: 85 Year
  Sex: Male

DRUGS (1)
  1. LANREOTIDE ACETATE [Suspect]
     Active Substance: LANREOTIDE ACETATE
     Indication: Neuroendocrine tumour
     Route: 058

REACTIONS (3)
  - Gait disturbance [Not Recovered/Not Resolved]
  - Off label use [Unknown]
  - Product supply issue [Unknown]

NARRATIVE: CASE EVENT DATE: 20220811
